FAERS Safety Report 11126669 (Version 1)
Quarter: 2020Q3

REPORT INFORMATION
  Report Type: Report from Study
  Country: JP (occurrence: JP)
  Receive Date: 20150520
  Receipt Date: 20150520
  Transmission Date: 20201105
  Serious: Yes (Other)
  Sender: FDA-Public Use
  Company Number: JP-JNJFOC-20150503648

PATIENT
  Sex: Female

DRUGS (6)
  1. DOXORUBICIN HYDROCHLORIDE. [Suspect]
     Active Substance: DOXORUBICIN HYDROCHLORIDE
     Indication: MALIGNANT PERITONEAL NEOPLASM
     Route: 042
  2. DOXORUBICIN HYDROCHLORIDE. [Suspect]
     Active Substance: DOXORUBICIN HYDROCHLORIDE
     Indication: OVARIAN CANCER RECURRENT
     Route: 042
  3. DOXORUBICIN HYDROCHLORIDE. [Suspect]
     Active Substance: DOXORUBICIN HYDROCHLORIDE
     Indication: FALLOPIAN TUBE CANCER
     Route: 042
  4. CARBOPLATIN. [Suspect]
     Active Substance: CARBOPLATIN
     Indication: MALIGNANT PERITONEAL NEOPLASM
     Route: 065
  5. CARBOPLATIN. [Suspect]
     Active Substance: CARBOPLATIN
     Indication: OVARIAN CANCER RECURRENT
     Route: 065
  6. CARBOPLATIN. [Suspect]
     Active Substance: CARBOPLATIN
     Indication: FALLOPIAN TUBE CANCER
     Route: 065

REACTIONS (29)
  - Palmar-plantar erythrodysaesthesia syndrome [Unknown]
  - Alopecia [Recovering/Resolving]
  - Leukopenia [Unknown]
  - Disease progression [Unknown]
  - Anxiety [Unknown]
  - Embolism arterial [Unknown]
  - Proteinuria [Unknown]
  - Fistula [Unknown]
  - Haemorrhage [Unknown]
  - Food aversion [Unknown]
  - Neutropenia [Unknown]
  - Product use in unapproved indication [Unknown]
  - Thrombocytopenia [Unknown]
  - Posterior reversible encephalopathy syndrome [Unknown]
  - Nephrotic syndrome [Unknown]
  - Fatigue [Unknown]
  - Gastrointestinal perforation [Unknown]
  - Hypertensive crisis [Unknown]
  - Vomiting [Unknown]
  - Anaemia [Unknown]
  - Stomatitis [Unknown]
  - Constipation [Unknown]
  - Rash [Unknown]
  - Nausea [Unknown]
  - Diarrhoea [Unknown]
  - Cardiac failure congestive [Unknown]
  - Neuropathy peripheral [Recovering/Resolving]
  - Hypersensitivity [Unknown]
  - Infection [Unknown]
